FAERS Safety Report 4610991-1 (Version None)
Quarter: 2005Q1

REPORT INFORMATION
  Report Type: 
  Country: None (occurrence: None)
  Receive Date: 20050316
  Receipt Date: 20050316
  Transmission Date: 20050727
  Serious: Yes (Hospitalization)
  Sender: FDA-Public Use
  Company Number: None

PATIENT
  Age: 62 Year
  Sex: Female
  Weight: 65.7716 kg

DRUGS (3)
  1. CYTOXAN [Suspect]
     Indication: MALIGNANT MELANOMA
     Dosage: PROTOCOL BB-IND 2749
     Dates: start: 20050217
  2. GMCSF [Suspect]
  3. AUTOLOGOUS VACCINE [Suspect]

REACTIONS (3)
  - BLOOD GLUCOSE INCREASED [None]
  - ESCHERICHIA URINARY TRACT INFECTION [None]
  - LOCALISED OEDEMA [None]
